FAERS Safety Report 4489963-6 (Version None)
Quarter: 2004Q4

REPORT INFORMATION
  Report Type: 
  Country: None (occurrence: None)
  Receive Date: 20041101
  Receipt Date: 20041011
  Transmission Date: 20050328
  Serious: Yes (Other)
  Sender: FDA-Public Use
  Company Number: AU-GLAXOSMITHKLINE-B0348346A

PATIENT
  Age: 60 Year
  Sex: Female
  Weight: 84 kg

DRUGS (6)
  1. SERETIDE [Suspect]
     Indication: ASTHMA
     Dosage: 2PUFF TWICE PER DAY
     Route: 055
     Dates: start: 20040928, end: 20041010
  2. ZOCOR [Concomitant]
     Route: 065
  3. LOSEC [Concomitant]
     Route: 065
  4. SPIRIVA [Concomitant]
     Route: 065
  5. BRICANYL [Concomitant]
     Route: 065
  6. PULMICORT [Concomitant]
     Route: 065

REACTIONS (7)
  - ASTHMA [None]
  - CRYING [None]
  - DEPRESSED MOOD [None]
  - EMOTIONAL DISORDER [None]
  - FATIGUE [None]
  - INSOMNIA [None]
  - MAJOR DEPRESSION [None]
